FAERS Safety Report 5088642-4 (Version None)
Quarter: 2006Q3

REPORT INFORMATION
  Report Type: 
  Country: None (occurrence: None)
  Receive Date: 20060825
  Receipt Date: 20060810
  Transmission Date: 20061208
  Serious: Yes (Other)
  Sender: FDA-Public Use
  Company Number: PHHO2006BR13404

PATIENT
  Age: 68 Year
  Sex: Female
  Weight: 58 kg

DRUGS (2)
  1. ZELMAC / HTF 919A [Suspect]
     Indication: PAIN
     Dosage: 6 MG, BID
     Route: 048
     Dates: end: 20060501
  2. PASALIX [Concomitant]
     Indication: PAIN

REACTIONS (9)
  - ABDOMINAL PAIN [None]
  - BACK DISORDER [None]
  - GAIT DISTURBANCE [None]
  - INSOMNIA [None]
  - MOBILITY DECREASED [None]
  - NEPHROLITHIASIS [None]
  - OSTEOARTHRITIS [None]
  - PROCEDURAL COMPLICATION [None]
  - RENAL STONE REMOVAL [None]
